FAERS Safety Report 19815894 (Version 1)
Quarter: 2021Q3

REPORT INFORMATION
  Report Type: Spontaneous
  Country: US (occurrence: US)
  Receive Date: 20210909
  Receipt Date: 20210909
  Transmission Date: 20211014
  Serious: No
  Sender: FDA-Public Use
  Company Number: NVSC2021US204243

PATIENT

DRUGS (1)
  1. INDOMETHACIN CAPSULES USP [Suspect]
     Active Substance: INDOMETHACIN
     Indication: PRODUCT USED FOR UNKNOWN INDICATION
     Dosage: 2 DF, (ONE AT A TIME) ABOUT 8 HOURS
     Route: 065

REACTIONS (1)
  - Malaise [Unknown]
